FAERS Safety Report 6427535-4 (Version None)
Quarter: 2009Q4

REPORT INFORMATION
  Report Type: 
  Country: None (occurrence: None)
  Receive Date: 20091104
  Receipt Date: 20090716
  Transmission Date: 20100525
  Serious: Yes (Hospitalization)
  Sender: FDA-Public Use
  Company Number: FR-PFIZER INC-2009265938

PATIENT
  Age: 70 Year
  Sex: Male
  Weight: 54 kg

DRUGS (22)
  1. EPIRUBICIN HCL [Suspect]
     Indication: GASTRIC CANCER
     Dosage: UNK, CYCLE 1
     Route: 042
     Dates: start: 20080526
  2. EPIRUBICIN HCL [Suspect]
     Dosage: UNK, CYCLE 2
     Route: 042
     Dates: start: 20080616
  3. EPIRUBICIN HCL [Suspect]
     Dosage: UNK, CYCLE 3
     Route: 042
     Dates: start: 20080708
  4. EPIRUBICIN HCL [Suspect]
     Dosage: UNK, CYCLE 4
     Route: 042
     Dates: start: 20080729
  5. EPIRUBICIN HCL [Suspect]
     Dosage: 80 MG, UNK
     Route: 042
     Dates: start: 20080827, end: 20080827
  6. CISPLATIN [Suspect]
     Indication: GASTRIC CANCER
     Dosage: UNK, CYCLE 1
     Route: 042
     Dates: start: 20080526
  7. CISPLATIN [Suspect]
     Dosage: UNK, CYCLE 2
     Route: 042
     Dates: start: 20080616
  8. CISPLATIN [Suspect]
     Dosage: UNK, CYCLE 3
     Route: 042
     Dates: start: 20080708
  9. CISPLATIN [Suspect]
     Dosage: UNK, CYCLE 4
     Route: 042
     Dates: start: 20080729
  10. CISPLATIN [Suspect]
     Dosage: 100 MG, UNK
     Route: 042
     Dates: start: 20080827, end: 20080827
  11. CAPECITABINE [Suspect]
     Indication: GASTRIC CANCER
     Dosage: UNK, CYCLE 1
     Route: 042
     Dates: start: 20080526
  12. CAPECITABINE [Suspect]
     Dosage: UNK, CYCLE 2
     Route: 042
     Dates: start: 20080616
  13. CAPECITABINE [Suspect]
     Dosage: UNK, CYCLE 3
     Route: 042
     Dates: start: 20080708
  14. CAPECITABINE [Suspect]
     Dosage: UNK, CYCLE 4
     Route: 042
     Dates: start: 20080729
  15. CAPECITABINE [Suspect]
     Dosage: 1650 MG, UNK
     Route: 042
     Dates: start: 20080827, end: 20080827
  16. SOLU-MEDROL [Concomitant]
     Indication: ANTIINFLAMMATORY THERAPY
     Dosage: 80 MG, UNK
     Route: 042
     Dates: start: 20080827, end: 20080827
  17. PRIMPERAN [Concomitant]
     Indication: NAUSEA
     Dosage: 80 MG, UNK
     Route: 042
     Dates: start: 20080827, end: 20080827
  18. ZOPHREN [Concomitant]
     Indication: NAUSEA
     Dosage: 8 MG, UNK
     Route: 048
     Dates: start: 20080827, end: 20080917
  19. MORPHINE SULFATE [Concomitant]
     Indication: PAIN
     Dosage: 160 MG, UNK
     Route: 048
     Dates: start: 20080826, end: 20080917
  20. ACTISKENAN [Concomitant]
     Indication: PAIN
     Dosage: 60 MG, UNK
     Route: 048
     Dates: start: 20080826, end: 20080917
  21. FORLAX [Concomitant]
     Indication: LAXATIVE SUPPORTIVE CARE
     Dosage: 1 DF, UNK
     Route: 048
     Dates: start: 20080826, end: 20080917
  22. NEXIUM [Concomitant]
     Indication: ULCER
     Dosage: 40 MG, UNK
     Route: 048
     Dates: start: 20080826, end: 20080917

REACTIONS (3)
  - INFLAMMATION [None]
  - PROSTATITIS ESCHERICHIA COLI [None]
  - PULMONARY EMBOLISM [None]
